FAERS Safety Report 20953091 (Version 2)
Quarter: 2022Q2

REPORT INFORMATION
  Report Type: Other
  Country: US (occurrence: None)
  Receive Date: 20220613
  Receipt Date: 20220630
  Transmission Date: 20220720
  Serious: Yes (Other)
  Sender: FDA-Public Use
  Company Number: US-ROCHE-3113316

PATIENT
  Age: 61 Year
  Sex: Male
  Weight: 86.260 kg

DRUGS (15)
  1. ACTEMRA [Suspect]
     Active Substance: TOCILIZUMAB
     Indication: Rheumatoid arthritis
     Route: 042
     Dates: end: 20200417
  2. ACTEMRA [Suspect]
     Active Substance: TOCILIZUMAB
     Indication: Rheumatoid arthritis
     Dosage: DOSE=162MG/0.9ML (MOST RECENT DATE OF TREATMENT WITH HIS TOCILIZUMAB WAS 25/MAY/2022)
     Route: 058
     Dates: start: 20200417
  3. ACTEMRA [Suspect]
     Active Substance: TOCILIZUMAB
  4. RITUXAN [Suspect]
     Active Substance: RITUXIMAB
     Indication: Rheumatoid arthritis
     Route: 041
  5. RITUXAN [Suspect]
     Active Substance: RITUXIMAB
     Route: 042
  6. RITUXAN [Suspect]
     Active Substance: RITUXIMAB
     Route: 042
  7. CALCIUM [Concomitant]
     Active Substance: CALCIUM
     Route: 048
  8. OXYCODONE AND ACETAMINOPHEN [Concomitant]
     Active Substance: ACETAMINOPHEN\OXYCODONE HYDROCHLORIDE
     Indication: Pain
     Route: 048
  9. HYDROXYZINE [Concomitant]
     Active Substance: HYDROXYZINE HYDROCHLORIDE
     Route: 048
  10. CYCLOBENZAPRINE [Concomitant]
     Active Substance: CYCLOBENZAPRINE
     Indication: Muscle spasms
     Route: 048
  11. PREGABALIN [Concomitant]
     Active Substance: PREGABALIN
     Route: 048
  12. ZOLPIDEM [Concomitant]
     Active Substance: ZOLPIDEM TARTRATE
     Route: 048
  13. PREDNISONE [Concomitant]
     Active Substance: PREDNISONE
     Indication: Inflammation
     Route: 048
  14. OMEPRAZOLE [Concomitant]
     Active Substance: OMEPRAZOLE
     Indication: Dyspepsia
     Route: 048
  15. HUMIRA [Concomitant]
     Active Substance: ADALIMUMAB

REACTIONS (9)
  - Foot fracture [Not Recovered/Not Resolved]
  - Sensory loss [Not Recovered/Not Resolved]
  - Paraesthesia [Recovered/Resolved]
  - Weight increased [Recovered/Resolved]
  - Tremor [Recovered/Resolved]
  - Memory impairment [Unknown]
  - Headache [Unknown]
  - Drug ineffective [Unknown]
  - Off label use [Unknown]

NARRATIVE: CASE EVENT DATE: 20201001
